FAERS Safety Report 11486949 (Version 2)
Quarter: 2015Q4

REPORT INFORMATION
  Report Type: Report from Study
  Country: US (occurrence: US)
  Receive Date: 20150909
  Receipt Date: 20151014
  Transmission Date: 20160304
  Serious: Yes (Other)
  Sender: FDA-Public Use
  Company Number: PHHY2015US087603

PATIENT
  Age: 43 Year
  Sex: Female

DRUGS (7)
  1. BACLOFEN. [Suspect]
     Active Substance: BACLOFEN
     Dosage: 150 UG, QD
     Route: 037
  2. BACLOFEN SANDOZ [Suspect]
     Active Substance: BACLOFEN
     Indication: PRODUCT USED FOR UNKNOWN INDICATION
     Dosage: 70 MG, 3 HOURS
     Route: 048
  3. BACLOFEN. [Suspect]
     Active Substance: BACLOFEN
     Indication: MUSCLE SPASTICITY
     Dosage: 340.9 UG, QD
     Route: 037
  4. BACLOFEN SANDOZ [Suspect]
     Active Substance: BACLOFEN
     Dosage: 20 MG, QD
     Route: 048
     Dates: start: 20150728
  5. LISINOPRIL. [Suspect]
     Active Substance: LISINOPRIL
     Indication: PRODUCT USED FOR UNKNOWN INDICATION
     Route: 065
     Dates: start: 20150710, end: 20150817
  6. BACLOFEN SANDOZ [Suspect]
     Active Substance: BACLOFEN
     Dosage: 2 DF, QID ( 80 MG), FOUR TIMES A DAY
     Route: 048
  7. BACLOFEN SANDOZ [Suspect]
     Active Substance: BACLOFEN
     Dosage: UNK
     Route: 065
     Dates: end: 20150817

REACTIONS (15)
  - Paraesthesia oral [Recovered/Resolved]
  - Pyrexia [Recovered/Resolved]
  - Body temperature increased [Recovered/Resolved]
  - Muscle spasticity [Recovered/Resolved]
  - Muscle tightness [Recovered/Resolved]
  - Paraesthesia [Recovered/Resolved]
  - Hypertonia [Recovered/Resolved]
  - Feeling drunk [Recovered/Resolved]
  - Clonus [Recovered/Resolved]
  - Pruritus [Recovered/Resolved]
  - Headache [Recovered/Resolved]
  - Drug withdrawal syndrome [Recovered/Resolved]
  - Hallucination [Recovered/Resolved]
  - Wound complication [Recovered/Resolved]
  - Muscle rigidity [Recovered/Resolved]

NARRATIVE: CASE EVENT DATE: 20150710
